FAERS Safety Report 9958874 (Version 1)
Quarter: 2014Q1

REPORT INFORMATION
  Report Type: Report from Study
  Country: US (occurrence: US)
  Receive Date: 20140305
  Receipt Date: 20140305
  Transmission Date: 20141002
  Serious: No
  Sender: FDA-Public Use
  Company Number: US-ABBVIE-13P-163-1103876-00

PATIENT
  Age: 53 Year
  Sex: Male

DRUGS (3)
  1. HUMIRA [Suspect]
     Indication: PSORIATIC ARTHROPATHY
     Route: 058
     Dates: start: 20130611
  2. MORPHINE [Concomitant]
     Indication: BACK PAIN
     Route: 048
  3. MELOXICAM [Concomitant]
     Indication: JOINT STIFFNESS
     Route: 048

REACTIONS (3)
  - Wrong technique in drug usage process [Recovered/Resolved]
  - Device malfunction [Recovered/Resolved]
  - Injection site haemorrhage [Recovered/Resolved]
